FAERS Safety Report 9378319 (Version 1)
Quarter: 2013Q3

REPORT INFORMATION
  Report Type: Spontaneous
  Country: FR (occurrence: FR)
  Receive Date: 20130701
  Receipt Date: 20130701
  Transmission Date: 20140515
  Serious: Yes (Hospitalization)
  Sender: FDA-Public Use
  Company Number: FR-TEVA-416195ISR

PATIENT
  Age: 85 Year
  Sex: Male

DRUGS (1)
  1. FUROSEMIDE TEVA 40 MG SCORED TABLET [Suspect]
     Indication: OEDEMA
     Dosage: 1 DOSAGE FORMS DAILY;
     Dates: start: 20130315, end: 20130610

REACTIONS (1)
  - Somnolence [Recovered/Resolved]
